FAERS Safety Report 22142279 (Version 2)
Quarter: 2023Q1

REPORT INFORMATION
  Report Type: Spontaneous
  Country: SE (occurrence: SE)
  Receive Date: 20230327
  Receipt Date: 20230331
  Transmission Date: 20230418
  Serious: Yes (Disabling, Other)
  Sender: FDA-Public Use
  Company Number: None

PATIENT
  Age: 10 Year
  Sex: Female

DRUGS (7)
  1. ABILIFY [Suspect]
     Active Substance: ARIPIPRAZOLE
     Indication: Paediatric acute-onset neuropsychiatric syndrome
     Dosage: 2 ML, QD
     Route: 048
     Dates: start: 20211118, end: 202202
  2. ABILIFY [Suspect]
     Active Substance: ARIPIPRAZOLE
     Dosage: 1 ML, QD
     Route: 048
     Dates: start: 202202, end: 202209
  3. ABILIFY [Suspect]
     Active Substance: ARIPIPRAZOLE
     Dosage: UNK
     Route: 048
     Dates: start: 202209, end: 20230112
  4. AMOXICILLIN [Concomitant]
     Active Substance: AMOXICILLIN
     Indication: Product used for unknown indication
     Dosage: 24 ML, QD (8 ML X 3)
     Route: 048
     Dates: start: 20211222, end: 20211227
  5. ESCITALOPRAM BLUEFISH [Concomitant]
     Indication: Product used for unknown indication
     Dosage: 10 MG, QD
     Route: 048
     Dates: start: 20211202, end: 20220126
  6. PROMETHAZINE HYDROCHLORIDE [Concomitant]
     Active Substance: PROMETHAZINE HYDROCHLORIDE
     Indication: Product used for unknown indication
     Dosage: UNK (2-4 TABLETS X 3 AS NEEDED)
     Route: 048
     Dates: start: 20210730, end: 20220307
  7. TERRACORTRIL MED POLYMYXIN B [Concomitant]
     Indication: Product used for unknown indication
     Dosage: UNK (EYE/EAR DROP SUSPENSION)
     Route: 065
     Dates: start: 20211222, end: 20211229

REACTIONS (5)
  - Cytopenia [Not Recovered/Not Resolved]
  - Restless legs syndrome [Recovered/Resolved]
  - Arthralgia [Not Recovered/Not Resolved]
  - Product use in unapproved indication [Unknown]
  - Product administered to patient of inappropriate age [Unknown]

NARRATIVE: CASE EVENT DATE: 20211118
